FAERS Safety Report 16809112 (Version 1)
Quarter: 2019Q3

REPORT INFORMATION
  Report Type: Report from Study
  Country: DE (occurrence: DE)
  Receive Date: 20190916
  Receipt Date: 20190916
  Transmission Date: 20191005
  Serious: Yes (Hospitalization)
  Sender: FDA-Public Use
  Company Number: DE-TEVA-2019-DE-1106562

PATIENT
  Sex: Male
  Weight: 87.5 kg

DRUGS (17)
  1. PREDNISOLONE. [Suspect]
     Active Substance: PREDNISOLONE
     Indication: ACUTE MYELOID LEUKAEMIA
     Dosage: 10 MILLIGRAM, QD
     Dates: start: 20190612, end: 20190612
  2. CYTARABINE. [Suspect]
     Active Substance: CYTARABINE
     Indication: ACUTE MYELOID LEUKAEMIA
     Dosage: 4160 MILLIGRAM, QD
     Dates: start: 20190612, end: 20190616
  3. FLUDARABINE [Suspect]
     Active Substance: FLUDARABINE PHOSPHATE
     Indication: ACUTE MYELOID LEUKAEMIA
     Dosage: 61.40 MILLIGRAM, QD
     Dates: start: 20190612, end: 20190616
  4. MYLOTARG [Suspect]
     Active Substance: GEMTUZUMAB OZOGAMICIN
     Indication: ACUTE MYELOID LEUKAEMIA
     Dosage: 963 MILLIGRAM, QD
     Dates: start: 20190505, end: 20190505
  5. ONDANSETRON [Concomitant]
     Active Substance: ONDANSETRON
     Indication: ANTIEMETIC SUPPORTIVE CARE
     Dosage: UNK
     Dates: start: 20160612, end: 20190617
  6. DIMENHYDRINATE. [Concomitant]
     Active Substance: DIMENHYDRINATE
     Indication: ANTIEMETIC SUPPORTIVE CARE
     Dosage: UNK
     Dates: start: 20190612, end: 20190617
  7. METHOTREXATE SODIUM. [Suspect]
     Active Substance: METHOTREXATE SODIUM
     Dosage: 12 MILLIGRAM, QD
     Dates: start: 20190503, end: 20190503
  8. ARTELAC                            /00445101/ [Concomitant]
     Active Substance: HYPROMELLOSES
     Indication: PROPHYLAXIS
     Dosage: UNK
     Dates: start: 20190612, end: 20190617
  9. PREDNISOLONE. [Suspect]
     Active Substance: PREDNISOLONE
     Dosage: 10 MILLIGRAM, QD
     Dates: start: 20190503, end: 20190503
  10. FLUDARABINE [Suspect]
     Active Substance: FLUDARABINE PHOSPHATE
     Dosage: 64.20 MILLIGRAM, QD
     Dates: start: 20190504, end: 20190508
  11. RAMIPRIL HCT [Concomitant]
     Active Substance: HYDROCHLOROTHIAZIDE\RAMIPRIL
     Indication: HYPERTENSION
     Dosage: UNK
     Dates: start: 20190512
  12. CYTARABINE. [Suspect]
     Active Substance: CYTARABINE
     Dosage: 30 MILLIGRAM, QD
     Dates: start: 20190503, end: 20190503
  13. METHOTREXATE SODIUM. [Suspect]
     Active Substance: METHOTREXATE SODIUM
     Indication: ACUTE MYELOID LEUKAEMIA
     Dosage: 12 MILLIGRAM, QD
     Dates: start: 20190612, end: 20190612
  14. VITAMIN B6 [Concomitant]
     Active Substance: PYRIDOXINE HYDROCHLORIDE
     Indication: PROPHYLAXIS
     Dosage: UNK
     Dates: start: 20190612, end: 20190616
  15. PANTOPRAZOL                        /01263201/ [Concomitant]
     Active Substance: PANTOPRAZOLE
     Dosage: UNK
  16. CYTARABINE. [Suspect]
     Active Substance: CYTARABINE
     Dosage: 4280 MILLIGRAM
     Dates: start: 20190504, end: 20190508
  17. VITAMIN D                          /00107901/ [Concomitant]
     Active Substance: ERGOCALCIFEROL
     Indication: HYPOVITAMINOSIS
     Dosage: UNK
     Dates: start: 20190612

REACTIONS (1)
  - Infection [Unknown]

NARRATIVE: CASE EVENT DATE: 20190626
